FAERS Safety Report 12850437 (Version 2)
Quarter: 2016Q4

REPORT INFORMATION
  Report Type: Report from Study
  Country: US (occurrence: US)
  Receive Date: 20161014
  Receipt Date: 20161118
  Transmission Date: 20170207
  Serious: Yes (Other)
  Sender: FDA-Public Use
  Company Number: US-BIOGEN-2016BI00304442

PATIENT
  Weight: 3.63 kg

DRUGS (1)
  1. TECFIDERA [Suspect]
     Active Substance: DIMETHYL FUMARATE
     Indication: MATERNAL EXPOSURE TIMING UNSPECIFIED
     Route: 064
     Dates: start: 20131119

REACTIONS (3)
  - Respiratory disorder [Recovered/Resolved]
  - Foetal exposure timing unspecified [Recovered/Resolved]
  - Eating disorder [Recovered/Resolved]
